FAERS Safety Report 5303090-7 (Version None)
Quarter: 2007Q2

REPORT INFORMATION
  Report Type: 
  Country: None (occurrence: None)
  Receive Date: 20070420
  Receipt Date: 20070413
  Transmission Date: 20071010
  Serious: Yes (Hospitalization)
  Sender: FDA-Public Use
  Company Number: US-AVENTIS-200616218US

PATIENT
  Sex: Female

DRUGS (5)
  1. LANTUS [Suspect]
     Dates: start: 20050401
  2. OPTICLIK (INSULIN INJECTION PEN) [Suspect]
     Dates: start: 20050401
  3. PRANDIN                            /01393601/ [Concomitant]
     Dosage: DOSE: UNK
  4. CARDIOVASCULAR SYSTEM DRUGS [Concomitant]
     Dosage: DOSE: UNK
  5. DIURETICS [Concomitant]
     Dosage: DOSE: UNK

REACTIONS (10)
  - BLOOD GLUCOSE INCREASED [None]
  - CEREBRAL HAEMORRHAGE [None]
  - CONCUSSION [None]
  - CONTUSION [None]
  - FALL [None]
  - LACERATION [None]
  - MOBILITY DECREASED [None]
  - MUSCULAR WEAKNESS [None]
  - RIB FRACTURE [None]
  - VASCULAR INJURY [None]
